FAERS Safety Report 21555206 (Version 3)
Quarter: 2023Q4

REPORT INFORMATION
  Report Type: Other
  Country: GB (occurrence: None)
  Receive Date: 20221104
  Receipt Date: 20231102
  Transmission Date: 20240110
  Serious: No
  Sender: FDA-Public Use
  Company Number: GB-ROCHE-3212672

PATIENT
  Age: 32 Year
  Sex: Male

DRUGS (1)
  1. OCREVUS [Suspect]
     Active Substance: OCRELIZUMAB
     Indication: Relapsing-remitting multiple sclerosis
     Dosage: DAY 1 ;ONGOING: YES, 2 ND INFUSION COMPLETED.
     Route: 041
     Dates: start: 20221101

REACTIONS (7)
  - Infusion related reaction [Recovered/Resolved]
  - Hepatitis B antibody positive [Not Recovered/Not Resolved]
  - Urine analysis abnormal [Not Recovered/Not Resolved]
  - Pruritus [Unknown]
  - Rash [Unknown]
  - Chronic hepatitis B [Unknown]
  - Urinary tract infection [Unknown]

NARRATIVE: CASE EVENT DATE: 20221101
